FAERS Safety Report 21541498 (Version 1)
Quarter: 2022Q4

REPORT INFORMATION
  Report Type: Report from Study
  Country: CA (occurrence: CA)
  Receive Date: 20221102
  Receipt Date: 20221102
  Transmission Date: 20230113
  Serious: Yes (Hospitalization)
  Sender: FDA-Public Use
  Company Number: CA-NOVPHSZ-PHHY2018CA088874

PATIENT
  Sex: Male

DRUGS (2)
  1. ERELZI [Suspect]
     Active Substance: ETANERCEPT-SZZS
     Indication: Rheumatoid arthritis
     Dosage: 50 MG, QW
     Route: 058
     Dates: start: 20180821
  2. ERELZI [Suspect]
     Active Substance: ETANERCEPT-SZZS
     Dosage: 50 MG, QW
     Route: 058
     Dates: start: 20180918, end: 202105

REACTIONS (5)
  - COVID-19 [Unknown]
  - Gait disturbance [Unknown]
  - Disorientation [Recovered/Resolved]
  - Pain [Unknown]
  - Arthritis [Unknown]

NARRATIVE: CASE EVENT DATE: 20180101
